FAERS Safety Report 23390299 (Version 3)
Quarter: 2024Q2

REPORT INFORMATION
  Report Type: Spontaneous
  Country: US (occurrence: US)
  Receive Date: 20240111
  Receipt Date: 20240405
  Transmission Date: 20240715
  Serious: No
  Sender: FDA-Public Use
  Company Number: US-AMGEN-USASP2024004115

PATIENT
  Sex: Female

DRUGS (1)
  1. EVENITY [Suspect]
     Active Substance: ROMOSOZUMAB-AQQG
     Indication: Product used for unknown indication
     Dosage: UNK
     Route: 065
     Dates: end: 20231212

REACTIONS (10)
  - Tooth infection [Unknown]
  - Toothache [Unknown]
  - Tooth fracture [Unknown]
  - Influenza like illness [Unknown]
  - Fatigue [Unknown]
  - Incorrect route of product administration [Unknown]
  - Injection site haemorrhage [Recovered/Resolved]
  - Malaise [Unknown]
  - Bone demineralisation [Unknown]
  - Injection site pain [Recovered/Resolved]

NARRATIVE: CASE EVENT DATE: 20230101
